FAERS Safety Report 10731054 (Version 7)
Quarter: 2020Q2

REPORT INFORMATION
  Report Type: Spontaneous
  Country: US (occurrence: US)
  Receive Date: 20150122
  Receipt Date: 20200512
  Transmission Date: 20200713
  Serious: Yes (Other)
  Sender: FDA-Public Use
  Company Number: US-PFIZER INC-2015027747

PATIENT
  Age: 40 Year
  Sex: Female
  Weight: 78 kg

DRUGS (15)
  1. EFFEXOR XR [Suspect]
     Active Substance: VENLAFAXINE HYDROCHLORIDE
     Indication: CRYING
  2. LYRICA [Suspect]
     Active Substance: PREGABALIN
     Indication: EAR DISCOMFORT
     Dosage: 125 MG, 1X/DAY(25 MG ONCE AT NIGHT BY MOUTH. TAKES WITH ONE OF HER 100 MG CAPSULES FOR TOTAL OF 125)
     Route: 048
  3. LYRICA [Suspect]
     Active Substance: PREGABALIN
     Dosage: UNK
     Route: 048
     Dates: start: 2011
  4. LYRICA [Suspect]
     Active Substance: PREGABALIN
     Dosage: 225 MG, DAILY(100 MG IN THE MORNING AND 125 MG AT NIGHT)
     Dates: start: 202002
  5. BACLOFEN. [Concomitant]
     Active Substance: BACLOFEN
     Indication: NERVE INJURY
     Dosage: 10 MG, 2X/DAY
  6. LYRICA [Suspect]
     Active Substance: PREGABALIN
     Indication: SEIZURE
     Dosage: 200 MG, 2X/DAY (ONE IN THE MORNING AND ONE AT 10PM AT NIGHT), (TAKE A CAPSULE BY MOUTH TWICE DAILY)
     Route: 048
     Dates: start: 2010
  7. LYRICA [Suspect]
     Active Substance: PREGABALIN
     Indication: PARTIAL SEIZURES
     Dosage: 100 MG, 2X/DAY(ONCE IN THE MORNING AND ONE AT NIGHT)
     Route: 048
  8. EFFEXOR [Suspect]
     Active Substance: VENLAFAXINE HYDROCHLORIDE
     Indication: NERVE INJURY
     Dosage: UNK, 2X/DAY (37.5 OR 75MG)
  9. LYRICA [Suspect]
     Active Substance: PREGABALIN
     Indication: NEURALGIA
     Dosage: 150 MG, 2X/DAY(TAKING 150 MG IN THE MORNING AND 150 MG AT NIGHT)
  10. BACLOFEN. [Concomitant]
     Active Substance: BACLOFEN
     Indication: MUSCLE DISORDER
  11. VIMPAT [Concomitant]
     Active Substance: LACOSAMIDE
     Indication: SEIZURE
     Dosage: 50 MG, 3X/DAY
  12. EFFEXOR [Suspect]
     Active Substance: VENLAFAXINE HYDROCHLORIDE
     Indication: MUSCLE DISORDER
  13. CLINDAMYCIN PHOSPHATE. [Concomitant]
     Active Substance: CLINDAMYCIN PHOSPHATE
     Dosage: UNK
  14. EFFEXOR XR [Suspect]
     Active Substance: VENLAFAXINE HYDROCHLORIDE
     Indication: DEPRESSED MOOD
     Dosage: 225 MG, DAILY (75 MG AT 4:00 PM AND 150 MG AT BEDTIME)
  15. VITAMINS [Concomitant]
     Active Substance: VITAMINS
     Dosage: UNK

REACTIONS (8)
  - Vomiting [Recovered/Resolved]
  - Nausea [Recovered/Resolved]
  - Seizure [Recovered/Resolved with Sequelae]
  - Fatigue [Unknown]
  - Mouth injury [Unknown]
  - Skin reaction [Unknown]
  - Somnolence [Not Recovered/Not Resolved]
  - Stress [Unknown]

NARRATIVE: CASE EVENT DATE: 20151007
